FAERS Safety Report 12586748 (Version 2)
Quarter: 2017Q3

REPORT INFORMATION
  Report Type: Spontaneous
  Country: US (occurrence: US)
  Receive Date: 20160725
  Receipt Date: 20170925
  Transmission Date: 20171127
  Serious: No
  Sender: FDA-Public Use
  Company Number: US-PFIZER INC-2016344828

PATIENT
  Age: 68 Year
  Sex: Female
  Weight: 43.54 kg

DRUGS (5)
  1. OXYBUTYNIN CHLORIDE. [Concomitant]
     Active Substance: OXYBUTYNIN CHLORIDE
     Indication: HYPERTONIC BLADDER
     Dosage: 5 MG, 1X/DAY
     Route: 048
  2. CHANTIX [Suspect]
     Active Substance: VARENICLINE TARTRATE
     Indication: SMOKING CESSATION THERAPY
     Dosage: UNK
     Route: 048
     Dates: start: 2015
  3. CHANTIX [Suspect]
     Active Substance: VARENICLINE TARTRATE
     Dosage: 1.0 MG, 1X/DAY
     Route: 048
     Dates: start: 20170902
  4. NABUMETONE. [Concomitant]
     Active Substance: NABUMETONE
     Indication: FIBROMYALGIA
     Dosage: 1000 MG, 1X/DAY
     Route: 048
  5. VITAMIN D3 [Concomitant]
     Active Substance: CHOLECALCIFEROL
     Indication: OSTEOPOROSIS
     Dosage: 2000 IU, 1X/DAY
     Route: 048

REACTIONS (7)
  - Abdominal discomfort [Unknown]
  - Abnormal dreams [Unknown]
  - Intentional product misuse [Unknown]
  - Nervousness [Unknown]
  - Eye disorder [Unknown]
  - Cataract [Unknown]
  - Nausea [Not Recovered/Not Resolved]

NARRATIVE: CASE EVENT DATE: 2016
